FAERS Safety Report 7804492-7 (Version None)
Quarter: 2011Q4

REPORT INFORMATION
  Report Type: 
  Country: None (occurrence: None)
  Receive Date: 20111010
  Receipt Date: 20111003
  Transmission Date: 20120403
  Serious: Yes (Death, Hospitalization, Other)
  Sender: FDA-Public Use
  Company Number: US-AMGEN-KDL440020

PATIENT
  Age: 80 Year
  Sex: Male

DRUGS (9)
  1. NPLATE [Suspect]
     Indication: IDIOPATHIC THROMBOCYTOPENIC PURPURA
     Dosage: 15 MUG/KG, QWK
     Dates: start: 20091130
  2. MEGACE [Concomitant]
     Dosage: UNK
  3. RITUXIMAB [Concomitant]
     Dosage: UNK
     Dates: start: 19961029
  4. CALCIUM CARBONATE [Concomitant]
  5. MULTI-VITAMINS [Concomitant]
     Dosage: UNK
  6. CORTICOSTEROIDS [Concomitant]
     Dosage: UNK
     Dates: start: 19961029
  7. VITAMIN D [Concomitant]
     Dosage: 400 IU, Q8H
     Route: 048
  8. NPLATE [Suspect]
     Dosage: 0.5 MUG/KG, UNK
     Dates: end: 20110311
  9. PREDNISONE [Concomitant]
     Dosage: 10 MG, BID
     Route: 048
     Dates: start: 20050807

REACTIONS (13)
  - PNEUMONIA [None]
  - DIARRHOEA [None]
  - RENAL FAILURE ACUTE [None]
  - MYELOFIBROSIS [None]
  - HAEMATOLOGICAL MALIGNANCY [None]
  - DIZZINESS [None]
  - PULMONARY EMBOLISM [None]
  - CONGESTIVE CARDIOMYOPATHY [None]
  - CHRONIC OBSTRUCTIVE PULMONARY DISEASE [None]
  - VENTRICULAR TACHYCARDIA [None]
  - EMBOLISM [None]
  - CARDIAC DISORDER [None]
  - CARDIOMYOPATHY [None]
